FAERS Safety Report 5091245-9 (Version None)
Quarter: 2006Q3

REPORT INFORMATION
  Report Type: 
  Country: None (occurrence: None)
  Receive Date: 20060727
  Receipt Date: 20060504
  Transmission Date: 20061208
  Serious: Yes (Other)
  Sender: FDA-Public Use
  Company Number: 2006061613

PATIENT
  Age: 71 Year
  Sex: Female
  Weight: 70.3075 kg

DRUGS (16)
  1. LYRICA [Suspect]
     Indication: HYPOAESTHESIA
     Dosage: 75 MG (75 MG,1 IN 1 D),ORAL
     Route: 048
     Dates: start: 20060201
  2. LYRICA [Suspect]
     Indication: PARAESTHESIA
     Dosage: 75 MG (75 MG,1 IN 1 D),ORAL
     Route: 048
     Dates: start: 20060201
  3. BENADRYL [Concomitant]
  4. IBUPROFEN [Concomitant]
  5. VICODIN [Concomitant]
  6. ASPIRIN [Concomitant]
  7. MIACALCIN [Concomitant]
  8. ACTONEL [Concomitant]
  9. ALPHAGAN [Concomitant]
  10. ALL OTHER THERAPEUTIC PRODUCTS (ALL OTHER THERAPEUTIC PRODUCTS) [Concomitant]
  11. ALPRAZOLAM [Concomitant]
  12. ROGAINE [Concomitant]
  13. VITAMINS (VITAMINS) [Concomitant]
  14. GINKO BILOBA (GINKGO BILOBA) [Concomitant]
  15. OMNICEF [Concomitant]
  16. ACETAMINOPHEN [Concomitant]

REACTIONS (1)
  - SWELLING FACE [None]
